FAERS Safety Report 8472408-9 (Version None)
Quarter: 2012Q2

REPORT INFORMATION
  Report Type: 
  Country: None (occurrence: None)
  Receive Date: 20120627
  Receipt Date: 20110816
  Transmission Date: 20120825
  Serious: No
  Sender: FDA-Public Use
  Company Number: US-AMGEN-USASP2011042329

PATIENT
  Sex: Female

DRUGS (2)
  1. PROCRIT [Suspect]
     Dosage: 20000 IU, Q2WK
  2. PROCRIT [Suspect]
     Indication: NEPHROGENIC ANAEMIA
     Dosage: 40000 IU, QWK

REACTIONS (1)
  - NODULE [None]
